FAERS Safety Report 21304704 (Version 1)
Quarter: 2022Q3

REPORT INFORMATION
  Report Type: Spontaneous
  Country: US (occurrence: None)
  Receive Date: 20220907
  Receipt Date: 20220907
  Transmission Date: 20221026
  Serious: No
  Sender: FDA-Public Use
  Company Number: US-ARIS GLOBAL-202109-1592

PATIENT
  Sex: Female

DRUGS (24)
  1. OXERVATE [Suspect]
     Active Substance: CENEGERMIN-BKBJ
     Indication: Neurotrophic keratopathy
     Route: 047
     Dates: start: 20210831
  2. OXERVATE [Suspect]
     Active Substance: CENEGERMIN-BKBJ
     Indication: Hypoaesthesia eye
  3. SYSTANE (HYPROMELLOSE 2910 (4000 MPA.S)) [Concomitant]
     Active Substance: HYPROMELLOSE 2910 (4000 MPA.S)
     Dosage: 0.3 %-0.4%
  4. VITAMIN D2 [Concomitant]
     Active Substance: ERGOCALCIFEROL
  5. SUDAFED [Concomitant]
     Active Substance: PSEUDOEPHEDRINE HYDROCHLORIDE
     Dosage: EXTENDED RELEASE TABLET
  6. TRAMADOL HCL [Concomitant]
     Active Substance: TRAMADOL HYDROCHLORIDE
  7. MELOXICAM [Concomitant]
     Active Substance: MELOXICAM
  8. FIASP [Concomitant]
     Active Substance: INSULIN ASPART
  9. OZEMPIC [Concomitant]
     Active Substance: SEMAGLUTIDE
     Dosage: 0.25 OR 0.5 PEN INJECTION
  10. GABAPENTIN [Concomitant]
     Active Substance: GABAPENTIN
  11. TYLENOL ARTHRITIS PAIN [Concomitant]
     Active Substance: ACETAMINOPHEN
     Dosage: EXTENDED RELEASE TABLET
  12. IRON [Concomitant]
     Active Substance: IRON
     Dosage: 159(45) EXTENDED RELEASE TABLET
  13. MINERALS\VITAMINS [Concomitant]
     Active Substance: MINERALS\VITAMINS
     Dosage: 300MG/250MG
  14. ELIQUIS [Concomitant]
     Active Substance: APIXABAN
  15. METFORMIN [Concomitant]
     Active Substance: METFORMIN HYDROCHLORIDE
     Dosage: EXTENDED RELEASE GASTRIC
  16. METOPROLOL SUCCINATE [Concomitant]
     Active Substance: METOPROLOL SUCCINATE
  17. SOTALOL [Concomitant]
     Active Substance: SOTALOL
  18. PRAVASTATIN SODIUM [Concomitant]
     Active Substance: PRAVASTATIN SODIUM
  19. SINGULAIR [Concomitant]
     Active Substance: MONTELUKAST SODIUM
  20. CELEXA [Concomitant]
     Active Substance: CITALOPRAM HYDROBROMIDE
  21. CYCLOBENZAPRINE HYDROCHLORIDE [Concomitant]
     Active Substance: CYCLOBENZAPRINE HYDROCHLORIDE
  22. LYRICA [Concomitant]
     Active Substance: PREGABALIN
  23. FUROSEMIDE [Concomitant]
     Active Substance: FUROSEMIDE
  24. NORTRIPTYLINE HYDROCHLORIDE [Concomitant]
     Active Substance: NORTRIPTYLINE HYDROCHLORIDE

REACTIONS (2)
  - Eye pain [Unknown]
  - Eyelid pain [Unknown]
